FAERS Safety Report 7483831-3 (Version None)
Quarter: 2011Q2

REPORT INFORMATION
  Report Type: 
  Country: None (occurrence: None)
  Receive Date: 20110517
  Receipt Date: 20110509
  Transmission Date: 20111010
  Serious: Yes (Hospitalization)
  Sender: FDA-Public Use
  Company Number: DE-SANOFI-AVENTIS-2010SA066567

PATIENT
  Age: 71 Year
  Sex: Male
  Weight: 84 kg

DRUGS (5)
  1. BISOPROLOL FUMARATE [Interacting]
     Route: 048
  2. ISONIAZID [Concomitant]
     Route: 065
  3. ETHAMBUTOL [Concomitant]
     Route: 065
  4. BISOPROLOL FUMARATE [Interacting]
     Dosage: 1-0-1/2 DAILY
     Route: 048
  5. RIFAMPICIN [Suspect]
     Route: 065

REACTIONS (5)
  - BLOOD PRESSURE INCREASED [None]
  - HEART RATE INCREASED [None]
  - DRUG EFFECT DECREASED [None]
  - DRUG INTERACTION [None]
  - VENTRICULAR EXTRASYSTOLES [None]
